FAERS Safety Report 8386609-1 (Version None)
Quarter: 2012Q2

REPORT INFORMATION
  Report Type: 
  Country: None (occurrence: None)
  Receive Date: 20120525
  Receipt Date: 20120229
  Transmission Date: 20120825
  Serious: No
  Sender: FDA-Public Use
  Company Number: US-GLAXOSMITHKLINE-A0967955A

PATIENT
  Age: 79 Year
  Sex: Male

DRUGS (10)
  1. BENTYL [Concomitant]
  2. XANAX [Concomitant]
  3. ACIPHEX [Concomitant]
  4. LOMOTIL [Concomitant]
  5. VYTORIN [Concomitant]
  6. CYANOCOBALAMIN [Concomitant]
  7. EFFEXOR XR [Concomitant]
  8. ARICEPT [Concomitant]
  9. VERAMYST [Suspect]
     Indication: RHINITIS ALLERGIC
     Dosage: 2SPR PER DAY
     Route: 045
     Dates: start: 20070101
  10. SEROQUEL [Concomitant]

REACTIONS (1)
  - DRUG INEFFECTIVE [None]
